FAERS Safety Report 23654096 (Version 2)
Quarter: 2024Q3

REPORT INFORMATION
  Report Type: Spontaneous
  Country: US (occurrence: US)
  Receive Date: 20240320
  Receipt Date: 20240910
  Transmission Date: 20241017
  Serious: Yes (Other)
  Sender: BRISTOL MYERS SQUIBB
  Company Number: US-BRISTOL-MYERS SQUIBB COMPANY-2024-044359

PATIENT
  Age: 79 Year
  Sex: Male
  Weight: 108 kg

DRUGS (12)
  1. REVLIMID [Suspect]
     Active Substance: LENALIDOMIDE
     Indication: Plasma cell myeloma
     Dosage: ONE CAPSULE ON MON-WED-FRI
     Route: 048
     Dates: start: 20230202
  2. REVLIMID [Suspect]
     Active Substance: LENALIDOMIDE
     Dates: start: 20230525
  3. REVLIMID [Suspect]
     Active Substance: LENALIDOMIDE
     Route: 048
     Dates: start: 20230202
  4. DARZALEX FASPRO [Concomitant]
     Active Substance: DARATUMUMAB\HYALURONIDASE-FIHJ
     Indication: Product used for unknown indication
  5. VITAMIN D3 [Concomitant]
     Active Substance: CHOLECALCIFEROL
     Indication: Product used for unknown indication
     Dosage: 1,000 UNIT
  6. ACYCLOVIR [Concomitant]
     Active Substance: ACYCLOVIR
     Indication: Product used for unknown indication
  7. ALBUTEROL SULFATE [Concomitant]
     Active Substance: ALBUTEROL SULFATE
     Indication: Product used for unknown indication
  8. DEXAMETHASONE [Concomitant]
     Active Substance: DEXAMETHASONE
     Indication: Product used for unknown indication
  9. FLONASE [Concomitant]
     Active Substance: FLUTICASONE PROPIONATE
     Indication: Product used for unknown indication
  10. LOSARTAN [Concomitant]
     Active Substance: LOSARTAN\LOSARTAN POTASSIUM
     Indication: Product used for unknown indication
  11. LUMIGAN [Concomitant]
     Active Substance: BIMATOPROST
     Indication: Product used for unknown indication
     Route: 047
  12. SIMVASTATIN [Concomitant]
     Active Substance: SIMVASTATIN
     Indication: Product used for unknown indication
     Route: 047

REACTIONS (2)
  - Thrombosis [Recovering/Resolving]
  - Off label use [Unknown]

NARRATIVE: CASE EVENT DATE: 20240308
